FAERS Safety Report 5885240-7 (Version None)
Quarter: 2008Q3

REPORT INFORMATION
  Report Type: 
  Country: None (occurrence: None)
  Receive Date: 20080916
  Receipt Date: 20080904
  Transmission Date: 20090109
  Serious: Yes (Disabling)
  Sender: FDA-Public Use
  Company Number: GB-PFIZER INC-2008019845

PATIENT
  Age: 34 Year
  Sex: Male
  Weight: 96 kg

DRUGS (14)
  1. LINEZOLID [Suspect]
     Indication: PULMONARY TUBERCULOSIS
     Route: 048
     Dates: start: 20071029, end: 20080401
  2. FOLIC ACID [Concomitant]
     Dosage: DAILY DOSE:5MG
     Dates: start: 20071201
  3. MULTI-VITAMINS [Concomitant]
     Route: 048
     Dates: start: 20071201
  4. ALL OTHER THERAPEUTIC PRODUCTS [Concomitant]
  5. PARA AMINOSALICYLIC ACID [Concomitant]
     Route: 048
     Dates: start: 20071201
  6. MOXIFLOXACIN HCL [Concomitant]
     Dosage: DAILY DOSE:400MG
     Route: 048
     Dates: start: 20071201
  7. CYCLOSERINE [Concomitant]
     Route: 048
     Dates: start: 20071201
  8. CAPREOMYCIN [Concomitant]
     Dosage: DAILY DOSE:1GRAM
     Route: 030
     Dates: start: 20071201
  9. FERROUS SULFATE TAB [Concomitant]
     Route: 048
  10. OMEPRAZOLE [Concomitant]
     Dosage: DAILY DOSE:20MG
  11. CLARITHROMYCIN [Concomitant]
  12. LANSOPRAZOLE [Concomitant]
  13. MEROPENEM [Concomitant]
  14. PROTHIONAMIDE [Concomitant]

REACTIONS (4)
  - ANAEMIA [None]
  - DRY MOUTH [None]
  - NEUROPATHY PERIPHERAL [None]
  - THIRST [None]
